FAERS Safety Report 25663799 (Version 2)
Quarter: 2025Q3

REPORT INFORMATION
  Report Type: Spontaneous
  Country: MY (occurrence: MY)
  Receive Date: 20250811
  Receipt Date: 20250814
  Transmission Date: 20251020
  Serious: No
  Sender: VIIV
  Company Number: MY-GSKCCFAPAC-Case-02500766_AE-101715

PATIENT

DRUGS (1)
  1. CABOTEGRAVIR [Suspect]
     Active Substance: CABOTEGRAVIR
     Indication: Product used for unknown indication

REACTIONS (1)
  - No adverse event [Unknown]
